FAERS Safety Report 5059165-3 (Version None)
Quarter: 2006Q3

REPORT INFORMATION
  Report Type: 
  Country: None (occurrence: None)
  Receive Date: 20060718
  Receipt Date: 20060707
  Transmission Date: 20061208
  Serious: Yes (Other)
  Sender: FDA-Public Use
  Company Number: 2006US-02859

PATIENT
  Age: 31 Year
  Sex: Male

DRUGS (1)
  1. ISOTRETINOIN [Suspect]
     Dosage: 20 MG BID
     Dates: start: 20060526

REACTIONS (3)
  - PREGNANCY OF PARTNER [None]
  - PREGNANCY ON ORAL CONTRACEPTIVE [None]
  - TRANSMISSION OF DRUG VIA SEMEN [None]
